FAERS Safety Report 7004847-7 (Version None)
Quarter: 2010Q3

REPORT INFORMATION
  Report Type: 
  Country: None (occurrence: None)
  Receive Date: 20100921
  Receipt Date: 20100910
  Transmission Date: 20110219
  Serious: Yes (Other)
  Sender: FDA-Public Use
  Company Number: US-NOVOPROD-314687

PATIENT
  Sex: Female
  Weight: 54.422 kg

DRUGS (4)
  1. VAGIFEM [Suspect]
     Indication: HORMONE REPLACEMENT THERAPY
     Dosage: 25 MCG
     Dates: start: 20010614
  2. ESTRACE [Suspect]
     Indication: HORMONE REPLACEMENT THERAPY
     Dosage: UNK
     Dates: start: 19970101, end: 19970901
  3. PROVERA [Suspect]
     Indication: HORMONE REPLACEMENT THERAPY
     Dosage: UNK
     Dates: start: 19970101, end: 19970901
  4. PREMPRO [Suspect]
     Indication: HORMONE REPLACEMENT THERAPY
     Dosage: 0.625/2.5 MG
     Dates: start: 19970901, end: 20020401

REACTIONS (3)
  - BREAST CANCER [None]
  - LYMPH NODE CANCER METASTATIC [None]
  - LYMPHOEDEMA [None]
